FAERS Safety Report 5145629-0 (Version None)
Quarter: 2006Q4

REPORT INFORMATION
  Report Type: 
  Country: None (occurrence: None)
  Receive Date: 20061102
  Receipt Date: 20061020
  Transmission Date: 20070319
  Serious: Yes (Hospitalization)
  Sender: FDA-Public Use
  Company Number: 15025

PATIENT
  Age: 67 Year
  Sex: Male

DRUGS (2)
  1. ANZATAX. MFR: MAYNE [Suspect]
     Indication: ADENOSQUAMOUS CELL LUNG CANCER STAGE II
     Dosage: 300 MG IV
     Route: 042
     Dates: start: 20060627, end: 20060627
  2. CARBOPLATIN [Concomitant]

REACTIONS (3)
  - BRONCHOSPASM [None]
  - CHEST PAIN [None]
  - ELECTROCARDIOGRAM T WAVE INVERSION [None]
